FAERS Safety Report 25270442 (Version 1)
Quarter: 2025Q2

REPORT INFORMATION
  Report Type: Spontaneous
  Country: US (occurrence: US)
  Receive Date: 20250505
  Receipt Date: 20250505
  Transmission Date: 20250716
  Serious: No
  Sender: INCYTE
  Company Number: US-EVENT-002349

PATIENT

DRUGS (1)
  1. OPZELURA [Suspect]
     Active Substance: RUXOLITINIB PHOSPHATE
     Indication: Acne
     Route: 065

REACTIONS (4)
  - Conjunctivitis [Recovering/Resolving]
  - Expired product administered [Unknown]
  - Drug effective for unapproved indication [Unknown]
  - Off label use [Unknown]
